FAERS Safety Report 20363664 (Version 5)
Quarter: 2022Q2

REPORT INFORMATION
  Report Type: Spontaneous
  Country: GB (occurrence: GB)
  Receive Date: 20220121
  Receipt Date: 20220505
  Transmission Date: 20220721
  Serious: Yes (Hospitalization, Other)
  Sender: FDA-Public Use
  Company Number: GB-NOVOPROD-883230

PATIENT
  Age: 41 Year
  Sex: Female
  Weight: 67.6 kg

DRUGS (2)
  1. NOVORAPID [Suspect]
     Active Substance: INSULIN ASPART
     Dosage: UNK (CHANGED CARTRDIGE)
     Route: 058
  2. NOVORAPID [Suspect]
     Active Substance: INSULIN ASPART
     Indication: Type 1 diabetes mellitus
     Dosage: UNK
     Route: 058
     Dates: start: 20180829

REACTIONS (7)
  - Diabetic ketoacidosis [Recovering/Resolving]
  - Urinary tract infection [Unknown]
  - Alanine aminotransferase increased [Unknown]
  - Abdominal pain upper [Unknown]
  - Eye colour change [Unknown]
  - Headache [Unknown]
  - Gastritis [Unknown]

NARRATIVE: CASE EVENT DATE: 20220108
